FAERS Safety Report 14601217 (Version 4)
Quarter: 2018Q4

REPORT INFORMATION
  Report Type: Report from Study
  Country: None (occurrence: US)
  Receive Date: 20180305
  Receipt Date: 20181030
  Transmission Date: 20190204
  Serious: Yes (Hospitalization, Disabling, Other)
  Sender: FDA-Public Use
  Company Number: US-ABBVIE-18P-163-2274868-00

PATIENT
  Age: 14 Year
  Sex: Male
  Weight: 61.2 kg

DRUGS (13)
  1. NEXIUM [Concomitant]
     Active Substance: ESOMEPRAZOLE MAGNESIUM
     Indication: CROHN^S DISEASE
     Route: 048
     Dates: start: 20120403
  2. LYSINE [Concomitant]
     Active Substance: LYSINE
     Indication: CROHN^S DISEASE
     Route: 048
     Dates: start: 20160419
  3. PREDNISONE. [Concomitant]
     Active Substance: PREDNISONE
     Route: 048
     Dates: start: 20170810
  4. SACCHAROMYCES BOULARDII [Concomitant]
     Active Substance: SACCHAROMYCES CEREVISIAE
     Indication: CROHN^S DISEASE
     Route: 048
     Dates: start: 20160922
  5. PREDNISONE. [Concomitant]
     Active Substance: PREDNISONE
     Indication: CROHN^S DISEASE
     Route: 048
     Dates: start: 20170804, end: 20170810
  6. VITAMIN D3 [Concomitant]
     Active Substance: CHOLECALCIFEROL
     Indication: CROHN^S DISEASE
     Route: 048
     Dates: start: 20121108
  7. CALCIUM CARBONATE. [Concomitant]
     Active Substance: CALCIUM CARBONATE
     Indication: CROHN^S DISEASE
     Route: 048
     Dates: start: 20131122
  8. MAGNESIUM SULFATE. [Concomitant]
     Active Substance: MAGNESIUM SULFATE
     Indication: WOUND
     Route: 061
     Dates: start: 20170814
  9. HYDROCORTISONE FOAM [Concomitant]
     Indication: POUCHITIS
     Route: 054
     Dates: start: 20170814
  10. MUPIROCIN. [Concomitant]
     Active Substance: MUPIROCIN
     Indication: ANORECTAL DISCOMFORT
     Route: 061
     Dates: start: 20170814
  11. HUMIRA [Suspect]
     Active Substance: ADALIMUMAB
     Indication: CROHN^S DISEASE
     Route: 058
     Dates: start: 20170214
  12. PANTOPRAZOLE [Concomitant]
     Active Substance: PANTOPRAZOLE
     Indication: CROHN^S DISEASE
     Route: 048
     Dates: start: 20161128
  13. STUART PRENATAL [Concomitant]
     Indication: CROHN^S DISEASE
     Route: 048
     Dates: start: 20120402

REACTIONS (2)
  - Pouchitis [Recovered/Resolved]
  - Abdominal wall abscess [Recovered/Resolved]

NARRATIVE: CASE EVENT DATE: 20180225
